FAERS Safety Report 5308406-3 (Version None)
Quarter: 2007Q2

REPORT INFORMATION
  Report Type: 
  Country: None (occurrence: None)
  Receive Date: 20070420
  Receipt Date: 20070420
  Transmission Date: 20071010
  Serious: No
  Sender: FDA-Public Use
  Company Number: None

PATIENT
  Sex: Male
  Weight: 68.5 kg

DRUGS (1)
  1. ERLOTINIB [Suspect]
     Indication: NON-SMALL CELL LUNG CANCER
     Dosage: 150 Q21 DAYS IV
     Route: 042
     Dates: start: 20061019, end: 20070322

REACTIONS (2)
  - PLEURAL EFFUSION [None]
  - PNEUMONIA [None]
